FAERS Safety Report 24991774 (Version 2)
Quarter: 2025Q2

REPORT INFORMATION
  Report Type: Spontaneous
  Country: US (occurrence: US)
  Receive Date: 20250220
  Receipt Date: 20250401
  Transmission Date: 20250716
  Serious: Yes (Other)
  Sender: GLAXOSMITHKLINE
  Company Number: US-GLAXOSMITHKLINE INC-US2025018790

PATIENT

DRUGS (7)
  1. BENLYSTA [Suspect]
     Active Substance: BELIMUMAB
     Indication: Systemic lupus erythematosus
     Dosage: 200 MG, WE
     Route: 058
     Dates: start: 202301
  2. HYDROXYCHLOROQUINE [Concomitant]
     Active Substance: HYDROXYCHLOROQUINE
     Indication: Systemic lupus erythematosus
     Dosage: UNK UNK, QD 150
  3. LEVOTHYROXINE [Concomitant]
     Active Substance: LEVOTHYROXINE
     Indication: Autoimmune thyroiditis
     Dosage: UNK UNK, QD
  4. CYTOMEL [Concomitant]
     Active Substance: LIOTHYRONINE SODIUM
     Indication: Autoimmune thyroiditis
     Dosage: 5 UG, BID
  5. CYMBALTA [Concomitant]
     Active Substance: DULOXETINE HYDROCHLORIDE
     Indication: Depression
     Dosage: 60 UG, QD
  6. OMEPRAZOLE [Concomitant]
     Active Substance: OMEPRAZOLE
     Indication: Dyspepsia
     Dosage: 20 UG, QD
  7. PREDNISONE [Concomitant]
     Active Substance: PREDNISONE
     Indication: Lupus nephritis
     Dosage: UNK UNK, QD

REACTIONS (4)
  - Lupus nephritis [Not Recovered/Not Resolved]
  - Renal pain [Not Recovered/Not Resolved]
  - Inappropriate schedule of product administration [Unknown]
  - Product dose omission issue [Unknown]

NARRATIVE: CASE EVENT DATE: 20250117
